FAERS Safety Report 10304662 (Version 1)
Quarter: 2014Q3

REPORT INFORMATION
  Report Type: Spontaneous
  Country: FR (occurrence: FR)
  Receive Date: 20140715
  Receipt Date: 20140715
  Transmission Date: 20150326
  Serious: Yes (Other)
  Sender: FDA-Public Use
  Company Number: FR-BRISTOL-MYERS SQUIBB COMPANY-21173422

PATIENT
  Age: 54 Year
  Sex: Female

DRUGS (2)
  1. VIREAD [Concomitant]
     Active Substance: TENOFOVIR DISOPROXIL FUMARATE
  2. SUSTIVA [Suspect]
     Active Substance: EFAVIRENZ
     Dates: start: 201205

REACTIONS (1)
  - Erythromelalgia [Unknown]

NARRATIVE: CASE EVENT DATE: 201401
